FAERS Safety Report 8092003-3 (Version None)
Quarter: 2012Q1

REPORT INFORMATION
  Report Type: 
  Country: None (occurrence: None)
  Receive Date: 20120131
  Receipt Date: 20120130
  Transmission Date: 20120608
  Serious: Yes (Hospitalization, Disabling, Other)
  Sender: FDA-Public Use
  Company Number: DE-JNJFOC-20110900582

PATIENT
  Age: 66 Year
  Sex: Male

DRUGS (8)
  1. LEVOFLOXACIN [Suspect]
     Indication: URINARY TRACT INFECTION
     Route: 048
     Dates: start: 20110527, end: 20110601
  2. LEVOFLOXACIN [Suspect]
     Indication: PROSTATITIS
     Route: 048
     Dates: start: 20110519, end: 20110525
  3. LEVOFLOXACIN [Suspect]
     Route: 048
     Dates: start: 20110527, end: 20110601
  4. PIPRIL [Concomitant]
     Indication: PRODUCT USED FOR UNKNOWN INDICATION
     Route: 065
     Dates: start: 20110501
  5. LEVOFLOXACIN [Suspect]
     Route: 048
     Dates: start: 20110519, end: 20110525
  6. TAMSULOSIN HCL [Concomitant]
     Route: 065
     Dates: start: 20110501
  7. OTHER ANTIBIOTICS [Concomitant]
     Route: 065
  8. COMBACTAM [Concomitant]
     Indication: PRODUCT USED FOR UNKNOWN INDICATION
     Route: 065
     Dates: start: 20110501

REACTIONS (6)
  - TENDONITIS [None]
  - HEADACHE [None]
  - TENDON PAIN [None]
  - TENDON DISORDER [None]
  - CLAVICLE FRACTURE [None]
  - TENDON RUPTURE [None]
